FAERS Safety Report 23965816 (Version 2)
Quarter: 2025Q1

REPORT INFORMATION
  Report Type: Report from Study
  Country: CA (occurrence: CA)
  Receive Date: 20240612
  Receipt Date: 20250122
  Transmission Date: 20250409
  Serious: Yes (Hospitalization, Other)
  Sender: TAKEDA
  Company Number: CA-TAKEDA-2017TUS019467

PATIENT
  Age: 66 Year
  Sex: Female

DRUGS (28)
  1. VEDOLIZUMAB [Suspect]
     Active Substance: VEDOLIZUMAB
     Indication: Colitis ulcerative
  2. VEDOLIZUMAB [Suspect]
     Active Substance: VEDOLIZUMAB
     Dosage: 300 MILLIGRAM, Q4WEEKS
     Dates: start: 20180830
  3. VEDOLIZUMAB [Suspect]
     Active Substance: VEDOLIZUMAB
     Dosage: 300 MILLIGRAM, Q4WEEKS
  4. VEDOLIZUMAB [Suspect]
     Active Substance: VEDOLIZUMAB
     Dosage: 300 MILLIGRAM, Q4WEEKS
  5. AMLODIPINE [Concomitant]
     Active Substance: AMLODIPINE BESYLATE
  6. METFORMIN [Concomitant]
     Active Substance: METFORMIN HYDROCHLORIDE
  7. HUMIRA [Concomitant]
     Active Substance: ADALIMUMAB
  8. CALCIUM [Concomitant]
     Active Substance: CALCIUM
  9. VITAMIN D [Concomitant]
     Active Substance: VITAMIN D NOS
  10. SYNTHROID [Concomitant]
     Active Substance: LEVOTHYROXINE SODIUM
  11. SYNTHROID [Concomitant]
     Active Substance: LEVOTHYROXINE SODIUM
  12. LANSOPRAZOLE [Concomitant]
     Active Substance: LANSOPRAZOLE
  13. RISEDRONATE SODIUM [Concomitant]
     Active Substance: RISEDRONATE SODIUM
  14. SIMVASTATIN [Concomitant]
     Active Substance: SIMVASTATIN
  15. VALSARTAN [Concomitant]
     Active Substance: VALSARTAN
  16. DIPHENHYDRAMINE [Concomitant]
     Active Substance: DIPHENHYDRAMINE
  17. RANITIDINE [Concomitant]
     Active Substance: RANITIDINE
  18. PREDNISONE [Concomitant]
     Active Substance: PREDNISONE
  19. IRON [Concomitant]
     Active Substance: IRON
     Indication: Anaemia
  20. DIOVAN [Concomitant]
     Active Substance: VALSARTAN
  21. HYDROCHLOROTHIAZIDE [Concomitant]
     Active Substance: HYDROCHLOROTHIAZIDE
  22. FOLIC ACID [Concomitant]
     Active Substance: FOLIC ACID
  23. ASPIRIN [Concomitant]
     Active Substance: ASPIRIN
  24. HYDROXYCHLOROQUINE [Concomitant]
     Active Substance: HYDROXYCHLOROQUINE
  25. ROSUVASTATIN CALCIUM [Concomitant]
     Active Substance: ROSUVASTATIN CALCIUM
  26. FERROUS SULFATE [Concomitant]
     Active Substance: FERROUS SULFATE
  27. METHOTREXATE [Concomitant]
     Active Substance: METHOTREXATE
  28. BISOPROLOL [Concomitant]
     Active Substance: BISOPROLOL

REACTIONS (10)
  - Rheumatoid arthritis [Unknown]
  - Haematochezia [Recovering/Resolving]
  - Large intestine polyp [Recovering/Resolving]
  - Haemorrhoids [Recovering/Resolving]
  - Mucous stools [Recovered/Resolved]
  - Anal haemorrhage [Recovered/Resolved]
  - Diarrhoea [Recovered/Resolved]
  - Anaemia [Recovering/Resolving]
  - Off label use [Unknown]
  - Blood pressure increased [Not Recovered/Not Resolved]

NARRATIVE: CASE EVENT DATE: 20180830
